FAERS Safety Report 5787191-5 (Version None)
Quarter: 2008Q2

REPORT INFORMATION
  Report Type: 
  Country: None (occurrence: None)
  Receive Date: 20080625
  Receipt Date: 20080620
  Transmission Date: 20081010
  Serious: Yes (Other)
  Sender: FDA-Public Use
  Company Number: GB-BRISTOL-MYERS SQUIBB COMPANY-14237812

PATIENT
  Age: 5 Year
  Sex: Female
  Weight: 16 kg

DRUGS (1)
  1. NADOLOL [Suspect]
     Indication: LONG QT SYNDROME
     Route: 048
     Dates: start: 20070609

REACTIONS (1)
  - HYPOGLYCAEMIC SEIZURE [None]
